FAERS Safety Report 4635625-1 (Version None)
Quarter: 2005Q2

REPORT INFORMATION
  Report Type: 
  Country: None (occurrence: None)
  Receive Date: 20050413
  Receipt Date: 20050406
  Transmission Date: 20051028
  Serious: Yes (Life-Threatening)
  Sender: FDA-Public Use
  Company Number: 2005AP02066

PATIENT
  Age: 17 Year
  Sex: Male
  Weight: 60 kg

DRUGS (4)
  1. MARCAINE [Suspect]
     Indication: SPINAL ANAESTHESIA
     Dosage: 13.5 MG IT
     Route: 037
  2. PHYSIO 140 [Concomitant]
  3. CEFAZOLIN SODIUM [Concomitant]
  4. POVIDONE IODINE [Concomitant]

REACTIONS (4)
  - ANAESTHETIC COMPLICATION [None]
  - ANAPHYLACTOID REACTION [None]
  - COUGH [None]
  - HYPOXIA [None]
